FAERS Safety Report 7331663-9 (Version None)
Quarter: 2011Q1

REPORT INFORMATION
  Report Type: 
  Country: None (occurrence: None)
  Receive Date: 20110304
  Receipt Date: 20110222
  Transmission Date: 20110831
  Serious: Yes (Hospitalization)
  Sender: FDA-Public Use
  Company Number: GB-SANOFI-AVENTIS-2011SA011626

PATIENT
  Age: 71 Year
  Sex: Male
  Weight: 100 kg

DRUGS (14)
  1. DIGOXIN [Concomitant]
  2. FINASTERIDE [Concomitant]
  3. SPIRONOLACTONE [Concomitant]
  4. CANDESARTAN CILEXETIL [Concomitant]
  5. WARFARIN SODIUM [Concomitant]
  6. ALLOPURINOL [Concomitant]
  7. BISOPROLOL FUMARATE [Concomitant]
     Dates: start: 20101001
  8. MULTAQ [Suspect]
     Route: 048
     Dates: start: 20101004, end: 20101010
  9. SOTALOL HYDROCHLORIDE [Concomitant]
     Dates: end: 20101001
  10. ATORVASTATIN CALCIUM [Concomitant]
  11. DOXAZOSIN [Concomitant]
  12. METFORMIN [Concomitant]
  13. GAVISCON [Concomitant]
  14. OMACOR [Concomitant]

REACTIONS (2)
  - HYPERKALAEMIA [None]
  - RENAL FAILURE ACUTE [None]
